FAERS Safety Report 8454306-X (Version None)
Quarter: 2012Q2

REPORT INFORMATION
  Report Type: 
  Country: None (occurrence: None)
  Receive Date: 20120620
  Receipt Date: 20120423
  Transmission Date: 20120825
  Serious: Yes (Hospitalization)
  Sender: FDA-Public Use
  Company Number: PHHY2008KR12917

PATIENT
  Sex: Female
  Weight: 55 kg

DRUGS (1)
  1. EXJADE [Suspect]
     Indication: MYELODYSPLASTIC SYNDROME
     Dosage: 1000 MG, 20MG/KG QD
     Route: 048
     Dates: start: 20070523, end: 20080714

REACTIONS (4)
  - CHEST PAIN [None]
  - PRODUCTIVE COUGH [None]
  - PNEUMONIA [None]
  - ABSCESS [None]
